FAERS Safety Report 4418141-1 (Version None)
Quarter: 2004Q3

REPORT INFORMATION
  Report Type: 
  Country: None (occurrence: None)
  Receive Date: 20040809
  Receipt Date: 20040804
  Transmission Date: 20050211
  Serious: Yes (Life-Threatening)
  Sender: FDA-Public Use
  Company Number: JP-BRISTOL-MYERS SQUIBB COMPANY-12662409

PATIENT
  Age: 54 Year
  Sex: Male

DRUGS (3)
  1. ZERIT [Suspect]
     Indication: HIV INFECTION
     Route: 048
     Dates: start: 19970815, end: 20031016
  2. VIRACEPT [Suspect]
     Indication: HIV INFECTION
     Dosage: INITIATED AT 2250 MG, INCREASED TO 2500 MG ON 01-NOV-2000
     Route: 048
     Dates: start: 19970730, end: 20031016
  3. NOVACT M [Concomitant]
     Dates: start: 19970730, end: 20031016

REACTIONS (1)
  - MENINGITIS [None]
